FAERS Safety Report 6887920-3 (Version None)
Quarter: 2010Q3

REPORT INFORMATION
  Report Type: 
  Country: None (occurrence: None)
  Receive Date: 20100730
  Receipt Date: 20100720
  Transmission Date: 20110219
  Serious: Yes (Hospitalization)
  Sender: FDA-Public Use
  Company Number: A0785628A

PATIENT
  Age: 50 Year
  Sex: Female
  Weight: 104.5 kg

DRUGS (8)
  1. AVANDIA [Suspect]
     Dosage: 2MG TWICE PER DAY
     Route: 048
     Dates: start: 20060401, end: 20060501
  2. AVANDAMET [Suspect]
     Dosage: 2MG TWICE PER DAY
     Route: 048
     Dates: start: 20040801, end: 20090220
  3. FERROUS SULFATE [Concomitant]
  4. LASIX [Concomitant]
  5. LISINOPRIL [Concomitant]
  6. GLUCOPHAGE [Concomitant]
  7. VYTORIN [Concomitant]
  8. PREMARIN [Concomitant]

REACTIONS (1)
  - MYOCARDIAL INFARCTION [None]
